FAERS Safety Report 5513969-9 (Version None)
Quarter: 2007Q4

REPORT INFORMATION
  Report Type: 
  Country: None (occurrence: None)
  Receive Date: 20071106
  Receipt Date: 20070705
  Transmission Date: 20080405
  Serious: Yes (Life-Threatening, Hospitalization)
  Sender: FDA-Public Use
  Company Number: US-JNJFOC-20070605249

PATIENT
  Sex: Male

DRUGS (3)
  1. MOTRIN [Suspect]
     Indication: DRUG USE FOR UNKNOWN INDICATION
     Dosage: TOOK FOR YEARS
  2. ADVIL [Suspect]
     Indication: DRUG USE FOR UNKNOWN INDICATION
     Dosage: TOOK FOR YEARS
  3. ALEVE [Suspect]
     Indication: DRUG USE FOR UNKNOWN INDICATION
     Dosage: TOOK FOR YEARS

REACTIONS (1)
  - GASTRIC ULCER HAEMORRHAGE [None]
